FAERS Safety Report 15057020 (Version 2)
Quarter: 2018Q4

REPORT INFORMATION
  Report Type: Spontaneous
  Country: US (occurrence: US)
  Receive Date: 20180624
  Receipt Date: 20181006
  Transmission Date: 20190204
  Serious: Yes (Death, Hospitalization, Other)
  Sender: FDA-Public Use
  Company Number: US-009507513-1806USA009986

PATIENT
  Sex: Male
  Weight: 95.24 kg

DRUGS (1)
  1. JANUVIA [Suspect]
     Active Substance: SITAGLIPTIN PHOSPHATE
     Indication: PRODUCT USED FOR UNKNOWN INDICATION
     Dosage: 100 MG, QD
     Route: 048
     Dates: start: 20081016, end: 201507

REACTIONS (37)
  - Intraductal papillary-mucinous carcinoma of pancreas [Unknown]
  - Pneumonia [Unknown]
  - Dehydration [Unknown]
  - Malignant pleural effusion [Unknown]
  - Diabetic neuropathy [Unknown]
  - Hypertension [Unknown]
  - Sinus disorder [Unknown]
  - Bile duct stenosis [Unknown]
  - Respiratory failure [Not Recovered/Not Resolved]
  - Haematochezia [Unknown]
  - Acute kidney injury [Unknown]
  - Acute respiratory failure [Unknown]
  - Pancreatitis chronic [Unknown]
  - Pancreatic cyst [Unknown]
  - Increased tendency to bruise [Unknown]
  - Hypotension [Unknown]
  - Febrile neutropenia [Unknown]
  - Pleural effusion [Unknown]
  - Tachycardia [Unknown]
  - Febrile neutropenia [Unknown]
  - Cardiac failure congestive [Unknown]
  - Oedema peripheral [Unknown]
  - Bile duct obstruction [Unknown]
  - Pancreatic carcinoma metastatic [Unknown]
  - Chronic obstructive pulmonary disease [Unknown]
  - Sleep disorder [Unknown]
  - Hepatitis A [Unknown]
  - Respiratory distress [Not Recovered/Not Resolved]
  - Cardiac arrest [Fatal]
  - Upper gastrointestinal haemorrhage [Unknown]
  - Jaundice cholestatic [Unknown]
  - Nocturia [Unknown]
  - Obesity [Unknown]
  - Hepatomegaly [Unknown]
  - Jaundice [Unknown]
  - Large intestine polyp [Unknown]
  - Acute pulmonary oedema [Not Recovered/Not Resolved]

NARRATIVE: CASE EVENT DATE: 2008
